FAERS Safety Report 25720798 (Version 1)
Quarter: 2025Q3

REPORT INFORMATION
  Report Type: Report from Study
  Country: US (occurrence: CA)
  Receive Date: 20250825
  Receipt Date: 20250825
  Transmission Date: 20251020
  Serious: Yes (Other)
  Sender: TAKEDA
  Company Number: US-TAKEDA-2025TUS033843

PATIENT
  Age: 54 Year
  Sex: Female

DRUGS (1)
  1. VEDOLIZUMAB [Suspect]
     Active Substance: VEDOLIZUMAB
     Indication: Crohn^s disease

REACTIONS (11)
  - Crohn^s disease [Unknown]
  - Poor venous access [Recovered/Resolved]
  - Crying [Unknown]
  - Anxiety [Unknown]
  - Mood swings [Unknown]
  - Abdominal discomfort [Recovering/Resolving]
  - Vitamin D increased [Recovering/Resolving]
  - Dehydration [Recovering/Resolving]
  - Vision blurred [Recovering/Resolving]
  - Headache [Recovering/Resolving]
  - Nausea [Recovering/Resolving]

NARRATIVE: CASE EVENT DATE: 20250328
